FAERS Safety Report 25710821 (Version 1)
Quarter: 2025Q3

REPORT INFORMATION
  Report Type: Spontaneous
  Country: US (occurrence: US)
  Receive Date: 20250821
  Receipt Date: 20250821
  Transmission Date: 20251021
  Serious: No
  Sender: SANOFI AVENTIS
  Company Number: US-SA-2025SA249347

PATIENT
  Age: 16 Year
  Sex: Female
  Weight: 70 kg

DRUGS (9)
  1. DUPIXENT [Suspect]
     Active Substance: DUPILUMAB
     Indication: Dermatitis atopic
     Route: 058
     Dates: start: 20250808, end: 20250808
  2. DUPIXENT [Suspect]
     Active Substance: DUPILUMAB
     Indication: Eczema
  3. LIDEX [Concomitant]
     Active Substance: FLUOCINONIDE
  4. SINGULAIR [Concomitant]
     Active Substance: MONTELUKAST SODIUM
  5. OPZELURA [Concomitant]
     Active Substance: RUXOLITINIB PHOSPHATE
  6. TACROLIMUS [Concomitant]
     Active Substance: TACROLIMUS
     Route: 061
  7. HYDROCORTISONE [Concomitant]
     Active Substance: HYDROCORTISONE
  8. FLOVENT [Concomitant]
     Active Substance: FLUTICASONE PROPIONATE
  9. KENALOG [Concomitant]
     Active Substance: TRIAMCINOLONE ACETONIDE

REACTIONS (5)
  - Streptococcal infection [Unknown]
  - Oropharyngeal pain [Unknown]
  - Dyspnoea [Unknown]
  - Chest discomfort [Unknown]
  - Eczema [Unknown]

NARRATIVE: CASE EVENT DATE: 20250801
